APPROVED DRUG PRODUCT: METHADONE HYDROCHLORIDE
Active Ingredient: METHADONE HYDROCHLORIDE
Strength: 10MG
Dosage Form/Route: TABLET;ORAL
Application: A204166 | Product #001 | TE Code: AA
Applicant: VISTAPHARM LLC
Approved: Mar 16, 2020 | RLD: No | RS: No | Type: RX